FAERS Safety Report 8815253 (Version 1)
Quarter: 2012Q4

REPORT INFORMATION
  Report Type: 
  Country: ES (occurrence: ES)
  Receive Date: 20120928
  Receipt Date: 20120928
  Transmission Date: 20130627
  Serious: Yes (Hospitalization)
  Sender: FDA-Public Use
  Company Number: ES-JNJFOC-20120911514

PATIENT
  Age: 42 Year
  Sex: Female

DRUGS (2)
  1. PALEXIA [Suspect]
     Indication: NECK PAIN
     Route: 048
     Dates: start: 201208
  2. PALEXIA [Suspect]
     Indication: NECK PAIN
     Route: 048
     Dates: end: 201209

REACTIONS (1)
  - Sick sinus syndrome [Unknown]
